FAERS Safety Report 18987785 (Version 2)
Quarter: 2021Q2

REPORT INFORMATION
  Report Type: Spontaneous
  Country: US (occurrence: US)
  Receive Date: 20210309
  Receipt Date: 20210423
  Transmission Date: 20210717
  Serious: No
  Sender: FDA-Public Use
  Company Number: US-ASTRAZENECA-2021A060353

PATIENT
  Sex: Female

DRUGS (1)
  1. SYMBICORT [Suspect]
     Active Substance: BUDESONIDE\FORMOTEROL FUMARATE DIHYDRATE
     Indication: CHRONIC OBSTRUCTIVE PULMONARY DISEASE
     Dosage: 160/4.5MCG 120 INHALATIONS 2 PUFFS TWICE A DAY
     Route: 055

REACTIONS (5)
  - Device delivery system issue [Unknown]
  - Intentional device misuse [Unknown]
  - Product packaging quantity issue [Unknown]
  - Condition aggravated [Unknown]
  - Dyspnoea [Unknown]
